FAERS Safety Report 8740309 (Version 2)
Quarter: 2012Q4

REPORT INFORMATION
  Report Type: 
  Country: US (occurrence: US)
  Receive Date: 20120823
  Receipt Date: 20120920
  Transmission Date: 20130627
  Serious: No
  Sender: FDA-Public Use
  Company Number: US-009507513-1208USA007641

PATIENT

DRUGS (1)
  1. GANIRELIX ACETATE INJECTION [Suspect]
     Dosage: UNK

REACTIONS (6)
  - Injection site urticaria [Recovered/Resolved]
  - Injection site haemorrhage [Recovered/Resolved]
  - Injection site erythema [Recovered/Resolved]
  - Injection site pruritus [Recovered/Resolved]
  - Injection site warmth [Recovered/Resolved]
  - Injection site reaction [Recovered/Resolved]
